FAERS Safety Report 4289685-0 (Version None)
Quarter: 2004Q1

REPORT INFORMATION
  Report Type: 
  Country: None (occurrence: None)
  Receive Date: 20040203
  Receipt Date: 20030521
  Transmission Date: 20041129
  Serious: Yes (Hospitalization, Other)
  Sender: FDA-Public Use
  Company Number: 200318093BWH

PATIENT
  Age: 51 Year
  Sex: Male
  Weight: 90.7194 kg

DRUGS (6)
  1. AVELOX [Suspect]
     Indication: SINUSITIS
     Dosage: 400 MG, QD, ORAL
     Route: 048
     Dates: start: 20030507
  2. ENALAPRIL MALEATE [Concomitant]
  3. NORVASC [Concomitant]
  4. EFFEXOR [Concomitant]
  5. ATENOLOL [Concomitant]
  6. ZOCOR [Concomitant]

REACTIONS (8)
  - EYE OEDEMA [None]
  - EYE PRURITUS [None]
  - HYPERHIDROSIS [None]
  - HYPERSENSITIVITY [None]
  - ORAL PRURITUS [None]
  - PRURITUS [None]
  - PRURITUS GENERALISED [None]
  - URTICARIA [None]
